FAERS Safety Report 10978634 (Version 1)
Quarter: 2015Q2

REPORT INFORMATION
  Report Type: Spontaneous
  Country: IT (occurrence: IT)
  Receive Date: 20150402
  Receipt Date: 20150402
  Transmission Date: 20150821
  Serious: Yes (Other)
  Sender: FDA-Public Use
  Company Number: IT-WATSON-2015-06911

PATIENT
  Age: 40 Year
  Sex: Female

DRUGS (1)
  1. OMEPRAZOLE (UNKNOWN) [Suspect]
     Active Substance: OMEPRAZOLE
     Indication: GASTROOESOPHAGEAL REFLUX DISEASE
     Dosage: 40 MG, DAILY
     Route: 048
     Dates: start: 20150217, end: 20150306

REACTIONS (3)
  - Enanthema [Recovered/Resolved]
  - Migraine [Recovered/Resolved]
  - Cachexia [Recovered/Resolved]

NARRATIVE: CASE EVENT DATE: 20150303
